FAERS Safety Report 7875699-8 (Version None)
Quarter: 2011Q4

REPORT INFORMATION
  Report Type: 
  Country: None (occurrence: None)
  Receive Date: 20111031
  Receipt Date: 20111021
  Transmission Date: 20120403
  Serious: Yes (Other)
  Sender: FDA-Public Use
  Company Number: DE-ASTRAZENECA-2011SE63958

PATIENT
  Sex: Female

DRUGS (2)
  1. SEROQUEL [Suspect]
     Dosage: 8-10 TABLETS
     Route: 048
     Dates: start: 20111021, end: 20111021
  2. SEROQUEL [Suspect]
     Indication: DEPRESSION
     Route: 048

REACTIONS (3)
  - GAIT DISTURBANCE [None]
  - OVERDOSE [None]
  - DEPRESSED LEVEL OF CONSCIOUSNESS [None]
